FAERS Safety Report 15865430 (Version 2)
Quarter: 2019Q1

REPORT INFORMATION
  Report Type: Report from Study
  Country: None (occurrence: US)
  Receive Date: 20190124
  Receipt Date: 20190228
  Transmission Date: 20190417
  Serious: Yes (Hospitalization, Other)
  Sender: FDA-Public Use
  Company Number: US-ABBVIE-19K-163-2633275-00

PATIENT
  Age: 32 Year
  Sex: Female
  Weight: 74 kg

DRUGS (3)
  1. KEFLEX [Concomitant]
     Active Substance: CEPHALEXIN
     Indication: INFECTION
  2. HUMIRA [Suspect]
     Active Substance: ADALIMUMAB
     Indication: CROHN^S DISEASE
     Route: 058
     Dates: start: 2015, end: 20190111
  3. CLINDAMYCIN. [Concomitant]
     Active Substance: CLINDAMYCIN
     Indication: PRODUCT USED FOR UNKNOWN INDICATION

REACTIONS (9)
  - Flatulence [Recovered/Resolved]
  - Infection [Recovered/Resolved]
  - Fungal infection [Recovered/Resolved]
  - Gastrointestinal fistula [Recovered/Resolved]
  - Abdominal pain upper [Recovering/Resolving]
  - Colon injury [Recovered/Resolved]
  - Abdominal abscess [Recovered/Resolved]
  - Crohn^s disease [Recovered/Resolved]
  - White blood cell count increased [Recovered/Resolved]

NARRATIVE: CASE EVENT DATE: 201808
